FAERS Safety Report 16932811 (Version 1)
Quarter: 2019Q4

REPORT INFORMATION
  Report Type: Spontaneous
  Country: IT (occurrence: IT)
  Receive Date: 20191018
  Receipt Date: 20191018
  Transmission Date: 20200122
  Serious: Yes (Other)
  Sender: FDA-Public Use
  Company Number: IT-BIOGEN-2019BI00796212

PATIENT
  Age: 47 Year
  Sex: Female

DRUGS (1)
  1. TECFIDERA [Suspect]
     Active Substance: DIMETHYL FUMARATE
     Indication: MULTIPLE SCLEROSIS
     Route: 065
     Dates: start: 20180903

REACTIONS (2)
  - Intraductal proliferative breast lesion [Not Recovered/Not Resolved]
  - Breast calcifications [Not Recovered/Not Resolved]

NARRATIVE: CASE EVENT DATE: 20190627
